FAERS Safety Report 17559526 (Version 2)
Quarter: 2021Q1

REPORT INFORMATION
  Report Type: Spontaneous
  Country: US (occurrence: US)
  Receive Date: 20200319
  Receipt Date: 20210115
  Transmission Date: 20210419
  Serious: Yes (Other)
  Sender: FDA-Public Use
  Company Number: US-HBP-2020US020353

PATIENT
  Age: 64 Year
  Sex: Female

DRUGS (1)
  1. MECHLORETHAMINE [Suspect]
     Active Substance: MECHLORETHAMINE
     Indication: CUTANEOUS T-CELL LYMPHOMA STAGE I
     Dosage: UNK, QD
     Route: 061

REACTIONS (5)
  - Dermatitis [Unknown]
  - Lymphomatoid papulosis [Unknown]
  - Malignant neoplasm progression [Unknown]
  - Disease recurrence [Unknown]
  - Lymphoma transformation [Unknown]
